FAERS Safety Report 9119792 (Version 1)
Quarter: 2013Q1

REPORT INFORMATION
  Report Type: Spontaneous
  Country: SE (occurrence: None)
  Receive Date: 20130130
  Receipt Date: 20130130
  Transmission Date: 20140127
  Serious: Yes (Other)
  Sender: FDA-Public Use
  Company Number: 2013-01131

PATIENT
  Age: 63 Year
  Sex: Female

DRUGS (2)
  1. MIRTAZAPINE (UNKNOWN) (MIRTAZAPINE) UNK, UNKUNK [Suspect]
     Indication: PRODUCT USED FOR UNKNOWN INDICATION
  2. ZYPREXA (OLANZAPINE) [Suspect]
     Indication: PRODUCT USED FOR UNKNOWN INDICATION

REACTIONS (2)
  - Dyskinesia [None]
  - Musculoskeletal stiffness [None]
